FAERS Safety Report 11045238 (Version 1)
Quarter: 2015Q2

REPORT INFORMATION
  Report Type: Report from Study
  Country: US (occurrence: US)
  Receive Date: 20150417
  Receipt Date: 20150417
  Transmission Date: 20150821
  Serious: Yes (Hospitalization, Other)
  Sender: FDA-Public Use
  Company Number: US-ABBVIE-15K-163-1333522-00

PATIENT
  Age: 66 Year
  Sex: Male

DRUGS (4)
  1. HUMIRA [Suspect]
     Active Substance: ADALIMUMAB
     Route: 065
     Dates: start: 20150317
  2. HUMIRA [Suspect]
     Active Substance: ADALIMUMAB
     Indication: RHEUMATOID ARTHRITIS
     Route: 065
     Dates: start: 201406, end: 20150224
  3. METHOTREXATE [Suspect]
     Active Substance: METHOTREXATE
     Indication: PRODUCT USED FOR UNKNOWN INDICATION
     Route: 065
  4. METHOTREXATE [Suspect]
     Active Substance: METHOTREXATE
     Route: 065
     Dates: start: 2015

REACTIONS (11)
  - Cerebrospinal fluid leakage [Recovering/Resolving]
  - Diarrhoea [Unknown]
  - Device deposit issue [Recovering/Resolving]
  - Spinal osteoarthritis [Recovered/Resolved]
  - Musculoskeletal pain [Unknown]
  - Nervous system disorder [Not Recovered/Not Resolved]
  - Nerve compression [Unknown]
  - Rheumatoid arthritis [Recovering/Resolving]
  - Sneezing [Unknown]
  - Device breakage [Recovering/Resolving]
  - Vertebral foraminal stenosis [Recovered/Resolved]

NARRATIVE: CASE EVENT DATE: 2014
